FAERS Safety Report 15049297 (Version 1)
Quarter: 2018Q2

REPORT INFORMATION
  Report Type: Spontaneous
  Country: US (occurrence: US)
  Receive Date: 20180601
  Receipt Date: 20180601
  Transmission Date: 20180711
  Serious: Yes (Other)
  Sender: FDA-Public Use
  Company Number: None

PATIENT
  Age: 56 Year
  Sex: Female

DRUGS (1)
  1. IMATINIB MES TAB 100MG [Suspect]
     Active Substance: IMATINIB MESYLATE
     Dates: start: 20170508, end: 20180601

REACTIONS (1)
  - Extra dose administered [None]

NARRATIVE: CASE EVENT DATE: 20180601
